FAERS Safety Report 8206373-6 (Version None)
Quarter: 2012Q1

REPORT INFORMATION
  Report Type: 
  Country: None (occurrence: None)
  Receive Date: 20120313
  Receipt Date: 20120308
  Transmission Date: 20120608
  Serious: Yes (Other)
  Sender: FDA-Public Use
  Company Number: PHEH2012US005386

PATIENT
  Sex: Male

DRUGS (11)
  1. WARFARIN SODIUM [Concomitant]
     Dosage: 5.2 MG
  2. LOVENOX [Concomitant]
     Dosage: 80 MG
  3. VITAMIN D [Concomitant]
  4. ASCORBIC ACID [Concomitant]
  5. GLEEVEC [Suspect]
     Dosage: 400 MG, QD
     Dates: start: 20040101
  6. ATENOLOL [Concomitant]
  7. FISH OIL [Concomitant]
  8. CELEBREX [Concomitant]
  9. FOLIC ACID [Concomitant]
  10. VITAMIN B-12 [Concomitant]
  11. LUMIGAN [Concomitant]

REACTIONS (1)
  - CEREBROVASCULAR ACCIDENT [None]
